FAERS Safety Report 21505682 (Version 1)
Quarter: 2022Q4

REPORT INFORMATION
  Report Type: Spontaneous
  Country: MM (occurrence: MM)
  Receive Date: 20221026
  Receipt Date: 20221026
  Transmission Date: 20230112
  Serious: Yes (Life-Threatening, Hospitalization, Disabling)
  Sender: FDA-Public Use
  Company Number: MM-JNJFOC-20221040065

PATIENT
  Age: 32 Year
  Sex: Male
  Weight: 52 kg

DRUGS (16)
  1. SIRTURO [Suspect]
     Active Substance: BEDAQUILINE FUMARATE
     Indication: Tuberculosis
     Dosage: 400 MG FIRST 2 WEEKS
     Route: 048
     Dates: start: 20220406
  2. SIRTURO [Suspect]
     Active Substance: BEDAQUILINE FUMARATE
     Route: 048
     Dates: start: 202204, end: 20220909
  3. SIRTURO [Suspect]
     Active Substance: BEDAQUILINE FUMARATE
     Route: 048
     Dates: start: 20220915
  4. LINEZOLID [Suspect]
     Active Substance: LINEZOLID
     Indication: Tuberculosis
     Route: 048
     Dates: start: 20220406
  5. LINEZOLID [Suspect]
     Active Substance: LINEZOLID
     Route: 048
     Dates: start: 20220709, end: 20220810
  6. DELAMANID [Suspect]
     Active Substance: DELAMANID
     Indication: Tuberculosis
     Route: 048
     Dates: start: 20220406, end: 20220909
  7. DELAMANID [Suspect]
     Active Substance: DELAMANID
     Route: 048
     Dates: start: 20220915
  8. CLOFAZIMINE [Suspect]
     Active Substance: CLOFAZIMINE
     Indication: Tuberculosis
     Dosage: 200MG OD ORAL FOR 2 ?MONTHS
     Route: 048
     Dates: start: 20220406, end: 20220909
  9. CLOFAZIMINE [Suspect]
     Active Substance: CLOFAZIMINE
     Dosage: 200MG OD ORAL FOR 2 ?MONTHS
     Route: 048
     Dates: start: 20220915
  10. ETHIONAMIDE [Suspect]
     Active Substance: ETHIONAMIDE
     Indication: Tuberculosis
     Dosage: START DATE GIVEN AS BOTH 10-08-2022 AND 11-08-2022
     Route: 048
     Dates: start: 20220810, end: 20220909
  11. ETHIONAMIDE [Suspect]
     Active Substance: ETHIONAMIDE
     Dosage: START DATE GIVEN AS BOTH 10-08-2022 AND 11-08-2022
     Route: 048
     Dates: start: 20220915
  12. ABACAVIR [Concomitant]
     Active Substance: ABACAVIR
     Indication: HIV infection
  13. METHADONE [Concomitant]
     Active Substance: METHADONE HYDROCHLORIDE
     Route: 048
     Dates: start: 20220202, end: 20220909
  14. LAMIVUDINE [Concomitant]
     Active Substance: LAMIVUDINE
     Indication: HIV infection
     Route: 065
     Dates: start: 20210623, end: 20211126
  15. METFORMIN [Concomitant]
     Active Substance: METFORMIN HYDROCHLORIDE
     Route: 048
  16. DOLUTEGRAVIR [Concomitant]
     Active Substance: DOLUTEGRAVIR
     Indication: HIV infection
     Route: 048
     Dates: start: 20210623, end: 20211126

REACTIONS (3)
  - Electrocardiogram QT prolonged [Recovering/Resolving]
  - Anaemia [Recovered/Resolved]
  - Neuropathy peripheral [Recovered/Resolved]

NARRATIVE: CASE EVENT DATE: 20220602
